FAERS Safety Report 5486885-9 (Version None)
Quarter: 2007Q3

REPORT INFORMATION
  Report Type: 
  Country: None (occurrence: None)
  Receive Date: 20070925
  Receipt Date: 20070606
  Transmission Date: 20080115
  Serious: No
  Sender: FDA-Public Use
  Company Number: 2007US001306

PATIENT
  Age: 84 Year
  Sex: Female

DRUGS (7)
  1. VESICARE [Suspect]
     Indication: BLADDER DISORDER
     Dosage: 10 MG, ORAL
     Route: 048
     Dates: start: 20070101
  2. WARFARIN SODIUM [Concomitant]
  3. FUROSEMIDE [Concomitant]
  4. DIGOXIN [Concomitant]
  5. TOPROL-XL [Concomitant]
  6. POTASSIUM CHLORIDE [Concomitant]
  7. TRICOR [Concomitant]

REACTIONS (1)
  - DRUG INEFFECTIVE [None]
